FAERS Safety Report 6154348-3 (Version None)
Quarter: 2009Q2

REPORT INFORMATION
  Report Type: 
  Country: None (occurrence: None)
  Receive Date: 20090414
  Receipt Date: 20090303
  Transmission Date: 20091009
  Serious: No
  Sender: FDA-Public Use
  Company Number: A0769127A

PATIENT
  Age: 62 Year
  Sex: Male
  Weight: 93.6 kg

DRUGS (4)
  1. REQUIP XL [Suspect]
     Indication: PARKINSON'S DISEASE
     Dosage: 2MG PER DAY
     Route: 048
     Dates: end: 20090201
  2. SINEMET [Concomitant]
     Dosage: 2.5TAB THREE TIMES PER DAY
     Route: 048
     Dates: start: 20080801
  3. ASPIRIN [Concomitant]
     Dosage: 81MG PER DAY
  4. M.V.I. [Concomitant]

REACTIONS (2)
  - ARTHRALGIA [None]
  - DERMATITIS ALLERGIC [None]
